FAERS Safety Report 10621137 (Version 2)
Quarter: 2015Q1

REPORT INFORMATION
  Report Type: Spontaneous
  Country: US (occurrence: US)
  Receive Date: 20141203
  Receipt Date: 20150204
  Transmission Date: 20150720
  Serious: Yes (Other)
  Sender: FDA-Public Use
  Company Number: US-AMGEN-USASP2014093087

PATIENT
  Sex: Female

DRUGS (1)
  1. PROCRIT [Suspect]
     Active Substance: ERYTHROPOIETIN
     Indication: NEPHROGENIC ANAEMIA
     Dosage: 20000 UNIT, QMO
     Route: 058
     Dates: start: 200611, end: 200808

REACTIONS (3)
  - Aplasia pure red cell [Unknown]
  - Drug ineffective [Unknown]
  - Anaemia [Unknown]

NARRATIVE: CASE EVENT DATE: 200808
